FAERS Safety Report 13801061 (Version 2)
Quarter: 2017Q3

REPORT INFORMATION
  Report Type: Spontaneous
  Country: PT (occurrence: PT)
  Receive Date: 20170727
  Receipt Date: 20170807
  Transmission Date: 20171127
  Serious: Yes (Other)
  Sender: FDA-Public Use
  Company Number: PT-TEVA-790369ISR

PATIENT
  Sex: Male
  Weight: 82 kg

DRUGS (2)
  1. IMATINIB TEVA [Suspect]
     Active Substance: IMATINIB
     Indication: CHRONIC MYELOID LEUKAEMIA
     Dosage: 400  DAILY;
     Route: 065
     Dates: start: 2017, end: 2017
  2. GLIVEC [Concomitant]
     Active Substance: IMATINIB MESYLATE
     Indication: CHRONIC MYELOID LEUKAEMIA
     Dosage: 400 MILLIGRAM DAILY;
     Route: 065
     Dates: start: 2006, end: 2017

REACTIONS (9)
  - Gastrointestinal disorder [Recovered/Resolved]
  - Oedema peripheral [Recovered/Resolved]
  - Blood glucose increased [Recovered/Resolved]
  - Product substitution issue [Unknown]
  - Pyrexia [Recovered/Resolved]
  - Eyelid oedema [Recovered/Resolved]
  - Oedema [Recovered/Resolved]
  - Nausea [Recovered/Resolved]
  - Vomiting [Recovered/Resolved]

NARRATIVE: CASE EVENT DATE: 2017
